FAERS Safety Report 5018679-2 (Version None)
Quarter: 2006Q2

REPORT INFORMATION
  Report Type: 
  Country: None (occurrence: None)
  Receive Date: 20060530
  Receipt Date: 20060523
  Transmission Date: 20061013
  Serious: Yes (Other)
  Sender: FDA-Public Use
  Company Number: S06-USA-01929-01

PATIENT
  Sex: Male

DRUGS (2)
  1. LEXAPRO [Suspect]
  2. MULTI-VITAMIN [Concomitant]

REACTIONS (1)
  - COAGULOPATHY [None]
